FAERS Safety Report 8948454 (Version 1)
Quarter: 2012Q4

REPORT INFORMATION
  Report Type: 
  Country: US (occurrence: US)
  Receive Date: 20121206
  Receipt Date: 20121206
  Transmission Date: 20130627
  Serious: Yes (Other)
  Sender: FDA-Public Use
  Company Number: PHEH2012US023679

PATIENT
  Age: 31 Year
  Sex: Female

DRUGS (1)
  1. ILARIS [Suspect]
     Dosage: 600 mg, every 6-8 weeks
     Route: 058

REACTIONS (3)
  - Syncope [Recovered/Resolved]
  - Fatigue [Recovered/Resolved]
  - Malaise [Recovered/Resolved]
